FAERS Safety Report 9539705 (Version 3)
Quarter: 2013Q4

REPORT INFORMATION
  Report Type: Spontaneous
  Country: US (occurrence: US)
  Receive Date: 20130920
  Receipt Date: 20131230
  Transmission Date: 20140711
  Serious: Yes (Other)
  Sender: FDA-Public Use
  Company Number: US-UCBSA-097667

PATIENT
  Age: 54 Year
  Sex: Female
  Weight: 68 kg

DRUGS (9)
  1. CIMZIA [Suspect]
     Indication: RHEUMATOID ARTHRITIS
     Dosage: ON HOLD
     Route: 058
  2. NEURONTIN [Concomitant]
     Dosage: FROM A COUPLE OF YEARS
  3. LIPITOR [Concomitant]
     Indication: BLOOD CHOLESTEROL INCREASED
     Dosage: ALMOST A YEAR
  4. FOSSILATE [Concomitant]
     Dosage: ALMOST A YEAR
  5. ALLOPURINOL [Concomitant]
     Dosage: TAKING FOR TWO MONTHS
  6. PRILOSEC [Concomitant]
     Indication: GASTROOESOPHAGEAL REFLUX DISEASE
     Dosage: A COUPLE OF YEARS OR EVEN LONGER
  7. CALCIUM [Concomitant]
     Indication: SUPPLEMENTATION THERAPY
  8. PREMARIN [Concomitant]
     Indication: HORMONE THERAPY
  9. MULTIVITAMIN [Concomitant]
     Indication: SUPPLEMENTATION THERAPY

REACTIONS (2)
  - Oral fungal infection [Recovered/Resolved]
  - Vulvovaginal mycotic infection [Recovered/Resolved]
